FAERS Safety Report 5155443-8 (Version None)
Quarter: 2006Q4

REPORT INFORMATION
  Report Type: 
  Country: None (occurrence: None)
  Receive Date: 20061114
  Receipt Date: 20061101
  Transmission Date: 20070319
  Serious: Yes (Hospitalization, Other)
  Sender: FDA-Public Use
  Company Number: 2006135708

PATIENT
  Sex: Female
  Weight: 83.9154 kg

DRUGS (14)
  1. NEURONTIN [Suspect]
     Indication: NEUROPATHY
     Dosage: ORAL
     Route: 048
     Dates: start: 20030101, end: 20030101
  2. DETROL LA [Suspect]
     Indication: POLLAKIURIA
     Dosage: 4 MG (4 MG, 1 IN 1 D), ORAL
     Route: 048
     Dates: start: 20060101
  3. POTASSIUM                                                       (POTAS [Suspect]
     Indication: HYPERTENSION
  4. HYDROCHLOROTHIAZIDE [Suspect]
     Indication: HYPERTENSION
  5. XANAX [Concomitant]
  6. BUSPAR [Concomitant]
  7. HALCION [Concomitant]
  8. VISTARIL [Concomitant]
  9. PERIACTIN [Concomitant]
  10. PREMPRO [Concomitant]
  11. NEXIUM [Suspect]
  12. BENTYL [Concomitant]
  13. ARTHROTEC [Concomitant]
  14. NORFLEX [Concomitant]

REACTIONS (9)
  - BLADDER PROLAPSE [None]
  - HYPERTENSION [None]
  - HYPOTENSION [None]
  - MICTURITION URGENCY [None]
  - OEDEMA [None]
  - POLLAKIURIA [None]
  - STRESS URINARY INCONTINENCE [None]
  - SWOLLEN TONGUE [None]
  - WEIGHT INCREASED [None]
